FAERS Safety Report 13508563 (Version 1)
Quarter: 2017Q2

REPORT INFORMATION
  Report Type: Report from Study
  Country: None (occurrence: BR)
  Receive Date: 20170503
  Receipt Date: 20170503
  Transmission Date: 20170830
  Serious: Yes (Hospitalization, Other)
  Sender: FDA-Public Use
  Company Number: BR-ABBVIE-17K-020-1960022-00

PATIENT
  Age: 61 Year
  Sex: Female
  Weight: 47 kg

DRUGS (4)
  1. LUFTAL [Concomitant]
     Active Substance: DIMETHICONE
     Route: 048
  2. LUFTAL [Concomitant]
     Active Substance: DIMETHICONE
     Indication: FLATULENCE
     Route: 048
     Dates: start: 20170424
  3. HUMIRA [Suspect]
     Active Substance: ADALIMUMAB
     Indication: RHEUMATOID ARTHRITIS
     Route: 058
     Dates: start: 20100101
  4. LUFTAL [Concomitant]
     Active Substance: DIMETHICONE
     Route: 048
     Dates: start: 201704, end: 201704

REACTIONS (2)
  - Intestinal polyp [Recovering/Resolving]
  - Procedural pain [Not Recovered/Not Resolved]

NARRATIVE: CASE EVENT DATE: 2017
